FAERS Safety Report 10909425 (Version 1)
Quarter: 2015Q1

REPORT INFORMATION
  Report Type: Spontaneous
  Country: US (occurrence: US)
  Receive Date: 20150312
  Receipt Date: 20150312
  Transmission Date: 20150721
  Serious: No
  Sender: FDA-Public Use
  Company Number: US-SA-2014SA054277

PATIENT
  Age: 64 Year
  Sex: Male

DRUGS (2)
  1. OXYMETAZOLINE [Concomitant]
     Active Substance: OXYMETAZOLINE
  2. NASACORT ALLERGY 24HR [Suspect]
     Active Substance: TRIAMCINOLONE ACETONIDE
     Indication: NASAL CONGESTION
     Dosage: 120 SPRAY DOSAGE
     Route: 065
     Dates: start: 20140414, end: 20140421

REACTIONS (6)
  - Sinus congestion [Unknown]
  - Paranasal sinus discomfort [Unknown]
  - Headache [Unknown]
  - Drug ineffective [Unknown]
  - Fatigue [Unknown]
  - Nasal congestion [Unknown]
